FAERS Safety Report 12572697 (Version 1)
Quarter: 2016Q3

REPORT INFORMATION
  Report Type: Spontaneous
  Country: US (occurrence: US)
  Receive Date: 20160720
  Receipt Date: 20160720
  Transmission Date: 20161109
  Serious: No
  Sender: FDA-Public Use
  Company Number: US-APOTEX-2016AP007526

PATIENT
  Age: 64 Year
  Sex: Female

DRUGS (4)
  1. NICOTINE TRANSDERMAL SYSTEM [Suspect]
     Active Substance: NICOTINE
     Dosage: 14 MG, UNK
     Route: 065
     Dates: start: 20160212
  2. ACETAMINOPHEN. [Concomitant]
     Active Substance: ACETAMINOPHEN
     Indication: PRODUCT USED FOR UNKNOWN INDICATION
     Dosage: UNK
     Route: 065
  3. ATIVAN [Concomitant]
     Active Substance: LORAZEPAM
     Indication: PRODUCT USED FOR UNKNOWN INDICATION
     Dosage: UNK
     Route: 065
  4. NICOTINE TRANSDERMAL SYSTEM [Suspect]
     Active Substance: NICOTINE
     Indication: SMOKING CESSATION THERAPY
     Dosage: 7 MG, QD
     Route: 062
     Dates: start: 20160314

REACTIONS (5)
  - Disorientation [Unknown]
  - Asthenia [Unknown]
  - Dizziness [Unknown]
  - Restlessness [Unknown]
  - Withdrawal syndrome [Unknown]

NARRATIVE: CASE EVENT DATE: 20160314
